FAERS Safety Report 20213973 (Version 1)
Quarter: 2021Q4

REPORT INFORMATION
  Report Type: Spontaneous
  Country: US (occurrence: US)
  Receive Date: 20211221
  Receipt Date: 20211221
  Transmission Date: 20220304
  Serious: Yes (Hospitalization)
  Sender: FDA-Public Use
  Company Number: US-PARI RESPIRATORY EQUIPMENT, INC.-2021PAR00073

PATIENT
  Sex: Male
  Weight: 19.683 kg

DRUGS (16)
  1. KITABIS PAK [Suspect]
     Active Substance: TOBRAMYCIN
     Indication: Cystic fibrosis
     Dosage: INHALE 5 ML (300 MG) AMPULE, 2X/DAY, ALTERNATE ONE MONTH ON, ONE MONTH OFF
     Dates: start: 2020
  2. KITABIS PAK [Suspect]
     Active Substance: TOBRAMYCIN
     Indication: Illness
  3. KITABIS PAK [Suspect]
     Active Substance: TOBRAMYCIN
     Indication: Bacterial infection
  4. KITABIS PAK [Suspect]
     Active Substance: TOBRAMYCIN
     Indication: Bacterial disease carrier
  5. KITABIS PAK [Suspect]
     Active Substance: TOBRAMYCIN
     Indication: Bacterial infection
  6. PULMOZYME [Concomitant]
     Active Substance: DORNASE ALFA
     Dosage: UNK
  7. MIRALAX [Concomitant]
     Active Substance: POLYETHYLENE GLYCOL 3350
     Dosage: UNK
  8. CIPROFLOXACIN [Concomitant]
     Active Substance: CIPROFLOXACIN
  9. FLOVENT HFA [Concomitant]
     Active Substance: FLUTICASONE PROPIONATE
  10. ALBUTEROL SULFATE [Concomitant]
     Active Substance: ALBUTEROL SULFATE
  11. ALBUTEROL SULFATE [Concomitant]
     Active Substance: ALBUTEROL SULFATE
  12. UNSPECIFIED INGREDIENT [Concomitant]
     Active Substance: UNSPECIFIED INGREDIENT
  13. VITAMIN D3 [Concomitant]
     Active Substance: CHOLECALCIFEROL
  14. TACROLIMUS [Concomitant]
     Active Substance: TACROLIMUS
  15. ZENPEP [Concomitant]
     Active Substance: PANCRELIPASE AMYLASE\PANCRELIPASE LIPASE\PANCRELIPASE PROTEASE
  16. SODIUM CHLORIDE [Concomitant]
     Active Substance: SODIUM CHLORIDE

REACTIONS (5)
  - Adenovirus infection [Unknown]
  - Pneumothorax [Unknown]
  - Cystic fibrosis [Unknown]
  - Respiratory failure [Unknown]
  - Off label use [Unknown]
